FAERS Safety Report 4449199-1 (Version None)
Quarter: 2004Q3

REPORT INFORMATION
  Report Type: 
  Country: None (occurrence: None)
  Receive Date: 20040913
  Receipt Date: 20040825
  Transmission Date: 20050211
  Serious: Yes (Hospitalization)
  Sender: FDA-Public Use
  Company Number: DSA_24869_2004

PATIENT
  Age: 82 Year
  Sex: Female
  Weight: 53.5244 kg

DRUGS (11)
  1. CARDIZEM CD [Suspect]
     Indication: HYPERTENSION
     Dosage: 240 MG Q DAY PO
     Route: 048
     Dates: start: 19970101, end: 20040201
  2. CARDIZEM LA [Suspect]
     Dosage: 180 MG Q DAY PO
     Route: 048
     Dates: start: 20040803, end: 20040808
  3. CARDIZEM CD [Suspect]
     Indication: HYPERTENSION
     Dosage: 300 MG Q DAY PO
     Route: 048
     Dates: start: 20040201, end: 20040101
  4. CARDIZEM CD [Suspect]
     Indication: HYPERTENSION
     Dosage: 300 MG Q DAY PO
     Route: 048
     Dates: start: 20040801, end: 20040808
  5. CARDIZEM CD [Suspect]
     Indication: HYPERTENSION
     Dosage: 240 MG Q DAY PO
     Route: 048
     Dates: start: 20040809
  6. PROTONIX [Concomitant]
  7. XANAX [Concomitant]
  8. ECOTRIN [Concomitant]
  9. CITRUCEL [Concomitant]
  10. COZAAR [Concomitant]
  11. TOPROL-XL [Concomitant]

REACTIONS (15)
  - ABDOMINAL PAIN [None]
  - CHEST PAIN [None]
  - CONDITION AGGRAVATED [None]
  - CONSTIPATION [None]
  - DECREASED APPETITE [None]
  - DRUG HYPERSENSITIVITY [None]
  - FALL [None]
  - HIP FRACTURE [None]
  - HYPERTENSION [None]
  - INSOMNIA [None]
  - NERVOUSNESS [None]
  - TREMOR [None]
  - UPPER LIMB FRACTURE [None]
  - VISUAL ACUITY REDUCED [None]
  - WEIGHT DECREASED [None]
